FAERS Safety Report 14219414 (Version 1)
Quarter: 2017Q4

REPORT INFORMATION
  Report Type: Spontaneous
  Country: US (occurrence: US)
  Receive Date: 20171123
  Receipt Date: 20171123
  Transmission Date: 20180321
  Serious: No
  Sender: FDA-Public Use
  Company Number: US-JNJFOC-20170907453

PATIENT
  Sex: Female
  Weight: 49.9 kg

DRUGS (14)
  1. LISINOPRIL. [Concomitant]
     Active Substance: LISINOPRIL
     Indication: HYPERTENSION
     Route: 065
  2. DURAGESIC [Suspect]
     Active Substance: FENTANYL
     Indication: MULTIPLE SCLEROSIS
     Route: 062
     Dates: start: 20170830
  3. DURAGESIC [Suspect]
     Active Substance: FENTANYL
     Indication: MULTIPLE SCLEROSIS
     Route: 062
     Dates: start: 201703, end: 201706
  4. DURAGESIC [Suspect]
     Active Substance: FENTANYL
     Indication: MULTIPLE SCLEROSIS
     Route: 062
     Dates: end: 201608
  5. PAXIL [Concomitant]
     Active Substance: PAROXETINE HYDROCHLORIDE
     Route: 065
  6. PROTONIX [Concomitant]
     Active Substance: PANTOPRAZOLE SODIUM
     Route: 065
  7. DURAGESIC [Suspect]
     Active Substance: FENTANYL
     Indication: MULTIPLE SCLEROSIS
     Route: 062
     Dates: start: 20170801, end: 20170829
  8. ATORVASTATIN [Concomitant]
     Active Substance: ATORVASTATIN
     Indication: CEREBROVASCULAR ACCIDENT PROPHYLAXIS
     Route: 065
  9. DURAGESIC [Suspect]
     Active Substance: FENTANYL
     Indication: MULTIPLE SCLEROSIS
     Route: 062
     Dates: start: 20160831, end: 201703
  10. DURAGESIC [Suspect]
     Active Substance: FENTANYL
     Indication: MULTIPLE SCLEROSIS
     Route: 062
     Dates: start: 201706, end: 20170731
  11. DURAGESIC [Suspect]
     Active Substance: FENTANYL
     Indication: MULTIPLE SCLEROSIS
     Route: 062
     Dates: end: 201608
  12. CLOPIDOGREL [Concomitant]
     Active Substance: CLOPIDOGREL BISULFATE
     Indication: ANTICOAGULANT THERAPY
     Route: 065
  13. REPAGLINIDE. [Concomitant]
     Active Substance: REPAGLINIDE
     Indication: DIABETES MELLITUS
     Route: 065
  14. SOMA [Concomitant]
     Active Substance: CARISOPRODOL
     Indication: PAIN
     Route: 065

REACTIONS (6)
  - Fatigue [Not Recovered/Not Resolved]
  - Wrong technique in product usage process [Unknown]
  - Nonspecific reaction [Unknown]
  - Drug tolerance [Not Recovered/Not Resolved]
  - Breakthrough pain [Unknown]
  - Inappropriate schedule of drug administration [Unknown]
